FAERS Safety Report 5848275-6 (Version None)
Quarter: 2008Q3

REPORT INFORMATION
  Report Type: 
  Country: None (occurrence: None)
  Receive Date: 20080818
  Receipt Date: 20080811
  Transmission Date: 20090109
  Serious: Yes (Other)
  Sender: FDA-Public Use
  Company Number: DE-JNJFOC-20080802023

PATIENT
  Age: 74 Year
  Sex: Female

DRUGS (2)
  1. GALANTAMINE HYDROBROMIDE [Suspect]
     Indication: DRUG USE FOR UNKNOWN INDICATION
     Dosage: SINCE MORE THAN 2 YEARS
     Route: 048
  2. ANTIHYPERTENSIVES NOS [Concomitant]
     Indication: HYPERTENSION
     Route: 065

REACTIONS (3)
  - MULTIPLE DRUG OVERDOSE ACCIDENTAL [None]
  - OSTEOPOROSIS [None]
  - SPINAL FRACTURE [None]
